FAERS Safety Report 8798148 (Version 9)
Quarter: 2013Q3

REPORT INFORMATION
  Report Type: Spontaneous
  Country: US (occurrence: US)
  Receive Date: 20120920
  Receipt Date: 20130723
  Transmission Date: 20140515
  Serious: Yes (Hospitalization, Other)
  Sender: FDA-Public Use
  Company Number: US-009507513-1202USA00881

PATIENT
  Sex: Female
  Weight: 61.22 kg

DRUGS (9)
  1. FOSAMAX [Suspect]
     Indication: OSTEOPOROSIS
     Dosage: 70 MG, QW
     Route: 048
     Dates: start: 20010901, end: 20080206
  2. FOSAMAX [Suspect]
     Dosage: 10 MG, QAM
     Route: 048
     Dates: start: 20000201, end: 20010807
  3. FOSAMAX [Suspect]
     Dosage: 10 MG, QW
     Route: 048
     Dates: start: 20090506
  4. FOSAMAX [Suspect]
     Dosage: 70 MG, QW
     Route: 048
     Dates: start: 20090814
  5. ALENDRONATE SODIUM [Suspect]
     Indication: OSTEOPOROSIS
     Dosage: 70 MG, QW
     Route: 048
     Dates: start: 20080304, end: 20090713
  6. VITAMINS (UNSPECIFIED) [Concomitant]
     Dosage: UNK UNK, QH
     Dates: start: 1992
  7. VITAMIN D (UNSPECIFIED) [Concomitant]
     Dosage: UNK, QD
     Dates: start: 1992
  8. CALCIUM (UNSPECIFIED) [Concomitant]
     Dosage: UNK, QD
     Dates: start: 1992
  9. OMEGA-3 MARINE TRIGLYCERIDES [Concomitant]
     Dosage: UNK, QD
     Dates: start: 1992

REACTIONS (37)
  - Femur fracture [Unknown]
  - Intramedullary rod insertion [Unknown]
  - Radius fracture [Unknown]
  - Open reduction of fracture [Unknown]
  - Medical device removal [Unknown]
  - Fall [Unknown]
  - Iron deficiency anaemia [Unknown]
  - Intramedullary rod insertion [Unknown]
  - Escherichia urinary tract infection [Unknown]
  - Haemorrhoidal haemorrhage [Unknown]
  - Open reduction of fracture [Unknown]
  - Femur fracture [Recovering/Resolving]
  - Constipation [Unknown]
  - Radius fracture [Unknown]
  - Impaired healing [Unknown]
  - Calcium deficiency [Unknown]
  - Tooth disorder [Unknown]
  - Body height decreased [Unknown]
  - Dysuria [Unknown]
  - Conjunctivitis viral [Unknown]
  - Fatigue [Unknown]
  - Wrist fracture [Unknown]
  - Cardiac disorder [Unknown]
  - Insomnia [Unknown]
  - Inappropriate schedule of drug administration [Unknown]
  - Rib fracture [Unknown]
  - Tonsillectomy [Unknown]
  - Weight increased [Unknown]
  - Dyspnoea [Unknown]
  - Nocturia [Unknown]
  - Fall [Unknown]
  - Ulna fracture [Unknown]
  - Osteoarthritis [Unknown]
  - Face injury [Unknown]
  - Abdominal pain [Unknown]
  - Neck pain [Unknown]
  - Gastrooesophageal reflux disease [Unknown]
